FAERS Safety Report 20616786 (Version 1)
Quarter: 2022Q1

REPORT INFORMATION
  Report Type: Spontaneous
  Country: US (occurrence: US)
  Receive Date: 20220321
  Receipt Date: 20220321
  Transmission Date: 20220423
  Serious: No
  Sender: FDA-Public Use
  Company Number: US-PERRIGO-22US000718

PATIENT
  Age: 64 Year
  Sex: Female
  Weight: 75.283 kg

DRUGS (1)
  1. CICLOPIROX [Suspect]
     Active Substance: CICLOPIROX
     Indication: Pruritus
     Dosage: 1 TEASPOON, WEEKLY
     Route: 061
     Dates: start: 2021

REACTIONS (4)
  - Skin discolouration [Not Recovered/Not Resolved]
  - Hair colour changes [Not Recovered/Not Resolved]
  - Drug ineffective [Unknown]
  - Incorrect product administration duration [Not Recovered/Not Resolved]

NARRATIVE: CASE EVENT DATE: 20210101
